FAERS Safety Report 17499789 (Version 2)
Quarter: 2020Q2

REPORT INFORMATION
  Report Type: Report from Study
  Country: None (occurrence: US)
  Receive Date: 20200304
  Receipt Date: 20200519
  Transmission Date: 20200713
  Serious: Yes (Hospitalization, Other)
  Sender: FDA-Public Use
  Company Number: US-ABBVIE-20K-163-3299526-00

PATIENT
  Sex: Female
  Weight: 67.65 kg

DRUGS (2)
  1. DIPHENOXYLATE/ATROPINE [Concomitant]
     Active Substance: ATROPINE\DIPHENOXYLATE
     Indication: PRODUCT USED FOR UNKNOWN INDICATION
     Dosage: 2.5-0.025
  2. HUMIRA [Suspect]
     Active Substance: ADALIMUMAB
     Indication: CROHN^S DISEASE
     Route: 058
     Dates: start: 201904

REACTIONS (11)
  - Renal failure [Unknown]
  - Stoma site discharge [Unknown]
  - Blood potassium decreased [Unknown]
  - Blood magnesium decreased [Unknown]
  - Blood iron decreased [Unknown]
  - Colostomy [Unknown]
  - Bone marrow disorder [Unknown]
  - Blood sodium decreased [Unknown]
  - Stoma site haemorrhage [Unknown]
  - Dehydration [Unknown]
  - Crohn^s disease [Unknown]
